FAERS Safety Report 6550975-X (Version None)
Quarter: 2010Q1

REPORT INFORMATION
  Report Type: 
  Country: None (occurrence: None)
  Receive Date: 20100125
  Receipt Date: 20100112
  Transmission Date: 20100710
  Serious: Yes (Hospitalization)
  Sender: FDA-Public Use
  Company Number: US-PFIZER INC-2010004729

PATIENT
  Age: 70 Year
  Sex: Female

DRUGS (10)
  1. CARDURA [Suspect]
     Indication: HYPERTENSION
     Dosage: UNK
     Route: 048
  2. ATENOLOL [Suspect]
     Indication: BLOOD PRESSURE
  3. LISINOPRIL [Suspect]
     Indication: BLOOD PRESSURE
  4. AMBRISENTAN [Suspect]
     Indication: PULMONARY ARTERIAL HYPERTENSION
     Dosage: 5 MG, UNK
     Route: 048
     Dates: start: 20091118, end: 20091231
  5. WARFARIN SODIUM [Concomitant]
  6. LASIX [Concomitant]
  7. FOSAMAX PLUS D [Concomitant]
  8. METHOTREXATE [Concomitant]
  9. SIMVASTATIN [Concomitant]
  10. SYNTHROID [Concomitant]

REACTIONS (5)
  - ASTHENIA [None]
  - DYSPNOEA [None]
  - HYPOTENSION [None]
  - SWELLING [None]
  - UNEVALUABLE EVENT [None]
